FAERS Safety Report 12946138 (Version 1)
Quarter: 2016Q4

REPORT INFORMATION
  Report Type: Spontaneous
  Country: BE (occurrence: BE)
  Receive Date: 20161116
  Receipt Date: 20161116
  Transmission Date: 20170207
  Serious: Yes (Hospitalization)
  Sender: FDA-Public Use
  Company Number: BE-ABBVIE-16K-013-1763669-00

PATIENT
  Sex: Female
  Weight: 56 kg

DRUGS (7)
  1. HUMIRA [Suspect]
     Active Substance: ADALIMUMAB
     Dosage: WEEK 2
     Route: 058
     Dates: start: 2016, end: 2016
  2. HUMIRA [Suspect]
     Active Substance: ADALIMUMAB
     Route: 058
     Dates: start: 2016
  3. HUMIRA [Suspect]
     Active Substance: ADALIMUMAB
     Indication: HIDRADENITIS
     Dosage: WEEK 0
     Route: 058
     Dates: start: 201602, end: 201602
  4. ELTHYRONE [Concomitant]
     Active Substance: LEVOTHYROXINE
     Indication: PRODUCT USED FOR UNKNOWN INDICATION
     Dates: start: 2002
  5. HUMIRA [Suspect]
     Active Substance: ADALIMUMAB
     Indication: ENTEROCOLITIS
     Route: 058
     Dates: start: 201501
  6. MEDROL [Concomitant]
     Active Substance: METHYLPREDNISOLONE
     Indication: PRODUCT USED FOR UNKNOWN INDICATION
     Dates: start: 201603, end: 2016
  7. METHOTREXATE. [Concomitant]
     Active Substance: METHOTREXATE
     Indication: PRODUCT USED FOR UNKNOWN INDICATION
     Route: 030
     Dates: start: 201602

REACTIONS (16)
  - Dermatitis exfoliative [Unknown]
  - Pallor [Unknown]
  - Drug effect incomplete [Unknown]
  - Groin abscess [Unknown]
  - Treatment noncompliance [Unknown]
  - Weight decreased [Unknown]
  - Anal abscess [Unknown]
  - Psychotic disorder [Unknown]
  - Subcutaneous abscess [Unknown]
  - Perineal abscess [Unknown]
  - Social problem [Unknown]
  - Rash pustular [Unknown]
  - Drug level decreased [Unknown]
  - Hypotension [Unknown]
  - Drug specific antibody present [Unknown]
  - Subcutaneous abscess [Unknown]

NARRATIVE: CASE EVENT DATE: 2016
